FAERS Safety Report 9466593 (Version 1)
Quarter: 2013Q3

REPORT INFORMATION
  Report Type: Spontaneous
  Country: US (occurrence: US)
  Receive Date: 20130820
  Receipt Date: 20130820
  Transmission Date: 20140515
  Serious: Yes (Other)
  Sender: FDA-Public Use
  Company Number: US-PFIZER INC-2013237634

PATIENT
  Age: 56 Year
  Sex: Female

DRUGS (4)
  1. ANASTROZOLE [Suspect]
     Indication: BREAST CANCER
     Dosage: UNK
  2. CARBOPLATIN [Suspect]
     Indication: BREAST CANCER
     Dosage: FOUR CYCLES
  3. CARBOPLATIN [Suspect]
     Indication: ENDOMETRIAL CANCER
  4. CARBOPLATIN [Suspect]
     Indication: OVARIAN CANCER

REACTIONS (3)
  - Papilloedema [Recovering/Resolving]
  - Visual field defect [Recovering/Resolving]
  - Visual acuity reduced [Recovering/Resolving]
